FAERS Safety Report 23358783 (Version 1)
Quarter: 2024Q1

REPORT INFORMATION
  Report Type: Spontaneous
  Country: CN (occurrence: CN)
  Receive Date: 20240102
  Receipt Date: 20240102
  Transmission Date: 20240410
  Serious: Yes (Hospitalization, Other)
  Sender: FDA-Public Use
  Company Number: CN-PFIZER INC-PV202300206513

PATIENT
  Age: 34 Year
  Sex: Male
  Weight: 70 kg

DRUGS (6)
  1. CYTARABINE [Suspect]
     Active Substance: CYTARABINE
     Indication: Lymphocytic leukaemia
     Dosage: 5.625 G, 2X/DAY
     Route: 041
     Dates: start: 20231116, end: 20231117
  2. METHOTREXATE SODIUM [Suspect]
     Active Substance: METHOTREXATE SODIUM
     Indication: Lymphocytic leukaemia
     Dosage: 1.875 G, SINGLE
     Route: 041
     Dates: start: 20231115, end: 20231115
  3. LEVOLEUCOVORIN CALCIUM [Suspect]
     Active Substance: LEVOLEUCOVORIN CALCIUM
     Indication: Lymphocytic leukaemia
     Dosage: 50.000 MG, 8 TIMES A DAY
     Route: 041
     Dates: start: 20231115, end: 20231115
  4. SODIUM CHLORIDE [Concomitant]
     Active Substance: SODIUM CHLORIDE
     Indication: Vehicle solution use
     Dosage: 500 ML, 1X/DAY
     Route: 041
     Dates: start: 20231115, end: 20231115
  5. SODIUM CHLORIDE [Concomitant]
     Active Substance: SODIUM CHLORIDE
     Dosage: 500 ML, 2X/DAY
     Route: 041
     Dates: start: 20231116, end: 20231117
  6. SODIUM CHLORIDE [Concomitant]
     Active Substance: SODIUM CHLORIDE
     Indication: Vehicle solution use
     Dosage: 100 ML, 8 TIMES A DAY
     Route: 041
     Dates: start: 20231115, end: 20231115

REACTIONS (1)
  - Full blood count decreased [Recovering/Resolving]

NARRATIVE: CASE EVENT DATE: 20231120
